FAERS Safety Report 18681098 (Version 3)
Quarter: 2021Q4

REPORT INFORMATION
  Report Type: Spontaneous
  Country: US (occurrence: US)
  Receive Date: 20201230
  Receipt Date: 20211001
  Transmission Date: 20220303
  Serious: No
  Sender: FDA-Public Use
  Company Number: US-PFIZER INC-2020505984

PATIENT
  Age: 11 Year
  Sex: Male

DRUGS (1)
  1. GENOTROPIN [Suspect]
     Active Substance: SOMATROPIN
     Dosage: 1.9 MG
     Dates: start: 2019

REACTIONS (4)
  - Device power source issue [Unknown]
  - Device information output issue [Unknown]
  - Drug dose omission by device [Unknown]
  - Product prescribing error [Unknown]
